FAERS Safety Report 19718035 (Version 1)
Quarter: 2021Q3

REPORT INFORMATION
  Report Type: Spontaneous
  Country: GB (occurrence: GB)
  Receive Date: 20210818
  Receipt Date: 20210818
  Transmission Date: 20211014
  Serious: Yes (Other)
  Sender: FDA-Public Use
  Company Number: GB-TEVA-2021-GB-1943531

PATIENT
  Age: 79 Year
  Sex: Female
  Weight: 78 kg

DRUGS (13)
  1. MOMETASONE [Concomitant]
     Active Substance: MOMETASONE
     Dosage: 4 DOSAGE FORMS DAILY; USE TWO SPRAYS IN EACH NOSTRIL ONCE DAILY
     Route: 045
     Dates: start: 20210427
  2. PARACETAMOL [Concomitant]
     Active Substance: ACETAMINOPHEN
     Dosage: TAKE ONE OR TWO TABLETS
     Dates: start: 20201117
  3. ATORVASTATIN [Suspect]
     Active Substance: ATORVASTATIN
     Dosage: 20 MILLIGRAM DAILY;
     Route: 065
     Dates: start: 20210802
  4. COCODAMOL [Concomitant]
     Active Substance: ACETAMINOPHEN\CODEINE PHOSPHATE
     Dosage: TAKE ONE OR TWO TABLETS
     Dates: start: 20201117
  5. IBUPROFEN. [Concomitant]
     Active Substance: IBUPROFEN
     Dosage: 9 DOSAGE FORMS DAILY; APPLY IF REQUIRED, UNIT DOSE : 3 DOSAGE FORMS
     Dates: start: 20200822
  6. AMLODIPINE [Concomitant]
     Active Substance: AMLODIPINE BESYLATE
     Dosage: 1 DOSAGE FORMS DAILY;
     Dates: start: 20210427
  7. LOSARTAN. [Concomitant]
     Active Substance: LOSARTAN
     Dosage: UNIT DOSE : 1 DOSAGE FORMS
     Dates: start: 20210427
  8. OPTICROM [Concomitant]
     Active Substance: CROMOLYN SODIUM
     Dosage: 4 DOSAGE FORMS DAILY; ONE DROP 4 TIMES/DAY, UNIT DOSE : 1 DOSAGE FORMS
     Dates: start: 20210624, end: 20210722
  9. CETIRIZINE [Concomitant]
     Active Substance: CETIRIZINE HYDROCHLORIDE
     Dosage: 1 DOSAGE FORMS DAILY;
     Dates: start: 20191010
  10. FERROUS FUMARATE [Concomitant]
     Active Substance: FERROUS FUMARATE
     Dosage: 2 DOSAGE FORMS DAILY; UNIT DOSE : 1 DOSAGE FORMS
     Dates: start: 20210624
  11. OMEPRAZOLE. [Concomitant]
     Active Substance: OMEPRAZOLE
     Dosage: 1 DOSAGE FORMS DAILY;
     Dates: start: 20210427
  12. DUORESP SPIROMAX [Concomitant]
     Active Substance: BUDESONIDE\FORMOTEROL
     Dosage: 4 DOSAGE FORMS DAILY; UNIT DOSE : 2 DOSAGE FORMS
     Route: 055
     Dates: start: 20210427
  13. SALAMOL [Concomitant]
     Active Substance: ALBUTEROL
     Indication: ASTHMA
     Dosage: UNIT DOSE : 2 DOSAGE FORMS
     Route: 055
     Dates: start: 20210427

REACTIONS (2)
  - Swelling face [Recovered/Resolved]
  - Nausea [Unknown]
